FAERS Safety Report 19312540 (Version 4)
Quarter: 2022Q2

REPORT INFORMATION
  Report Type: Report from Study
  Country: CL (occurrence: CL)
  Receive Date: 20210527
  Receipt Date: 20220527
  Transmission Date: 20220721
  Serious: Yes (Hospitalization, Other)
  Sender: FDA-Public Use
  Company Number: CL-SA-2020SA335413

PATIENT
  Age: 59 Year
  Sex: Female
  Weight: 43.7 kg

DRUGS (10)
  1. FABRAZYME [Suspect]
     Active Substance: AGALSIDASE BETA
     Indication: Fabry^s disease
     Dosage: 2 DF (VIALS), QM
     Route: 041
  2. FABRAZYME [Suspect]
     Active Substance: AGALSIDASE BETA
     Dosage: 1 DF
     Route: 041
  3. CALCIUM CARBONATE [Concomitant]
     Active Substance: CALCIUM CARBONATE
     Indication: End stage renal disease
     Dosage: 1 DF, QD
     Route: 048
  4. ERYTHROPOIETIN [Concomitant]
     Active Substance: ERYTHROPOIETIN
     Indication: Anaemia
     Dosage: UNK UNK, TIW
     Route: 048
  5. ATORVASTATIN [Concomitant]
     Active Substance: ATORVASTATIN
     Indication: Blood cholesterol abnormal
     Dosage: 1 DF, QD
     Route: 048
  6. ACETAMINOPHEN [Concomitant]
     Active Substance: ACETAMINOPHEN
     Indication: Pain
     Dosage: UNK DF, Q8H
     Route: 048
  7. LEVOTHYROXINE [Concomitant]
     Active Substance: LEVOTHYROXINE
     Indication: Hypothyroidism
     Dosage: 1 DF, QD
     Route: 048
  8. LEVETIRACETAM [Concomitant]
     Active Substance: LEVETIRACETAM
     Indication: Seizure
     Dosage: 1 DF, Q12H
     Route: 048
  9. MEROPENEM [Concomitant]
     Active Substance: MEROPENEM
     Dosage: 1 DF, Q12H
     Route: 042
  10. COVID-19 VACCINE NOS [Suspect]
     Active Substance: COVID-19 VACCINE NOS

REACTIONS (18)
  - Hypertensive crisis [Recovering/Resolving]
  - Dyspnoea [Recovering/Resolving]
  - Wheezing [Recovering/Resolving]
  - Headache [Recovering/Resolving]
  - Psychomotor hyperactivity [Recovering/Resolving]
  - Hypertensive heart disease [Unknown]
  - Pulmonary valve incompetence [Unknown]
  - Arterial catheterisation abnormal [Unknown]
  - Sensory loss [Unknown]
  - Tendon disorder [Unknown]
  - Poor venous access [Unknown]
  - Extravasation [Unknown]
  - Inflammation [Recovered/Resolved]
  - Discomfort [Recovered/Resolved]
  - Discomfort [Unknown]
  - Abdominal pain [Unknown]
  - Myalgia [Unknown]
  - Inappropriate schedule of product administration [Unknown]

NARRATIVE: CASE EVENT DATE: 20210501
